FAERS Safety Report 12427822 (Version 1)
Quarter: 2016Q2

REPORT INFORMATION
  Report Type: Spontaneous
  Country: US (occurrence: US)
  Receive Date: 20160602
  Receipt Date: 20160602
  Transmission Date: 20160815
  Serious: Yes (Hospitalization, Other)
  Sender: FDA-Public Use
  Company Number: US-RECKITT BENCKISER HEALTHCARE INT LIMITED-RB-86302-2016

PATIENT
  Age: 30 Month
  Sex: Female

DRUGS (1)
  1. MUCINEX FOR KIDS [Suspect]
     Active Substance: GUAIFENESIN
     Indication: PYREXIA
     Dosage: UNK, BID, TOOK HALF A BOTTLE
     Route: 065
     Dates: start: 20160515, end: 20160520

REACTIONS (3)
  - Drug administered to patient of inappropriate age [Recovered/Resolved]
  - Drug ineffective [Not Recovered/Not Resolved]
  - Dehydration [Recovered/Resolved]

NARRATIVE: CASE EVENT DATE: 20160515
